FAERS Safety Report 9512241 (Version 1)
Quarter: 2013Q1

REPORT INFORMATION
  Report Type: Spontaneous
  Country: US (occurrence: None)
  Receive Date: 20130305
  Receipt Date: 20130305
  Transmission Date: 20140127
  Serious: Yes (Other)
  Sender: FDA-Public Use
  Company Number: 163-21880-12102144

PATIENT
  Age: 73 Year
  Sex: Male

DRUGS (2)
  1. REVLIMID (LENALIDOMIDE) (25 MILLIGRAM, CAPSULES) [Suspect]
     Indication: PLASMA CELL MYELOMA
     Dosage: 21 IN 28 D
     Route: 048
     Dates: start: 20110713
  2. PREDNILOSONE (PRENISOLONE) (EYE DROPS) [Concomitant]

REACTIONS (3)
  - Blood iron decreased [None]
  - Anaemia [None]
  - Fatigue [None]
